FAERS Safety Report 5956736-4 (Version None)
Quarter: 2008Q4

REPORT INFORMATION
  Report Type: 
  Country: None (occurrence: None)
  Receive Date: 20081117
  Receipt Date: 20081117
  Transmission Date: 20090506
  Serious: Yes (Other)
  Sender: FDA-Public Use
  Company Number: None

PATIENT
  Sex: Male
  Weight: 121.1104 kg

DRUGS (1)
  1. KEPPRA [Suspect]
     Indication: CONVULSION
     Dosage: 500 MG 3 X DAY
     Dates: start: 20080908

REACTIONS (6)
  - CAROTID ARTERY DISEASE [None]
  - CONCUSSION [None]
  - CONVULSION [None]
  - FALL [None]
  - HYPOAESTHESIA [None]
  - IMPAIRED WORK ABILITY [None]
